FAERS Safety Report 19597294 (Version 2)
Quarter: 2022Q2

REPORT INFORMATION
  Report Type: Report from Study
  Country: US (occurrence: US)
  Receive Date: 20210722
  Receipt Date: 20220625
  Transmission Date: 20220720
  Serious: Yes (Other)
  Sender: FDA-Public Use
  Company Number: US-TAKEDA-2021TUS043990

PATIENT
  Age: 43 Year
  Sex: Male

DRUGS (8)
  1. TEDUGLUTIDE [Suspect]
     Active Substance: TEDUGLUTIDE
     Indication: Short-bowel syndrome
     Dosage: 4.5 MILLIGRAM (0.05MG/KG), QD
     Route: 042
     Dates: start: 20181205
  2. TEDUGLUTIDE [Suspect]
     Active Substance: TEDUGLUTIDE
     Indication: Short-bowel syndrome
     Dosage: 4.5 MILLIGRAM (0.05MG/KG), QD
     Route: 042
     Dates: start: 20181205
  3. TEDUGLUTIDE [Suspect]
     Active Substance: TEDUGLUTIDE
     Indication: Short-bowel syndrome
     Dosage: 4.5 MILLIGRAM (0.05MG/KG), QD
     Route: 042
     Dates: start: 20181205
  4. TEDUGLUTIDE [Suspect]
     Active Substance: TEDUGLUTIDE
     Indication: Short-bowel syndrome
     Dosage: 4.5 MILLIGRAM (0.05MG/KG), QD
     Route: 042
     Dates: start: 20181205
  5. VANCOMYCIN [Concomitant]
     Active Substance: VANCOMYCIN
     Indication: Catheter removal
     Dosage: 1750 MILLIGRAM, BID
     Route: 042
     Dates: start: 20200923, end: 20200930
  6. LOVENOX [Concomitant]
     Active Substance: ENOXAPARIN SODIUM
     Indication: Subclavian vein thrombosis
     Dosage: 1 MILLIGRAM, BID
     Route: 058
     Dates: start: 20200601
  7. BACTRIM [Concomitant]
     Active Substance: SULFAMETHOXAZOLE\TRIMETHOPRIM
     Indication: Complication associated with device
     Dosage: 9999999 UNK
     Route: 048
     Dates: start: 20200425, end: 20200502
  8. DOMPERIDONE [Concomitant]
     Active Substance: DOMPERIDONE
     Indication: Impaired gastric emptying
     Dosage: 10 MILLIGRAM, TID
     Route: 048
     Dates: start: 20170321, end: 201908

REACTIONS (4)
  - Stoma site infection [Recovered/Resolved]
  - Subclavian vein thrombosis [Not Recovered/Not Resolved]
  - Staphylococcal infection [Recovered/Resolved]
  - Vascular device infection [Recovered/Resolved]

NARRATIVE: CASE EVENT DATE: 20200421
